FAERS Safety Report 24313099 (Version 2)
Quarter: 2024Q3

REPORT INFORMATION
  Report Type: Spontaneous
  Country: US (occurrence: US)
  Receive Date: 20240912
  Receipt Date: 20240927
  Transmission Date: 20241016
  Serious: Yes (Life-Threatening, Hospitalization)
  Sender: TEVA
  Company Number: US-TEVA-VS-3240386

PATIENT
  Age: 33 Year
  Sex: Male

DRUGS (10)
  1. ALBUTEROL\IPRATROPIUM [Suspect]
     Active Substance: ALBUTEROL\IPRATROPIUM
     Indication: Obstructive airways disorder
     Route: 065
  2. BUDESONIDE\FORMOTEROL [Suspect]
     Active Substance: BUDESONIDE\FORMOTEROL
     Indication: Obstructive airways disorder
     Route: 065
  3. HELIUM\OXYGEN [Suspect]
     Active Substance: HELIUM\OXYGEN
     Indication: Obstructive airways disorder
     Route: 065
  4. TREPROSTINIL [Suspect]
     Active Substance: TREPROSTINIL
     Indication: Pulmonary hypertension
     Dosage: INHALED TREPROSTINIL DRY POWDER INHALER
     Route: 055
  5. TREPROSTINIL [Suspect]
     Active Substance: TREPROSTINIL
     Indication: Pulmonary hypertension
     Dosage: NEBULIZED INHALED TREPROSTINIL 9 BREATHS (54 MCG) 4 TIMES DAILY [SIC]
     Route: 055
  6. FUROSEMIDE [Suspect]
     Active Substance: FUROSEMIDE
     Indication: Pulmonary hypertension
     Route: 065
  7. EPOPROSTENOL [Suspect]
     Active Substance: EPOPROSTENOL
     Indication: Pulmonary hypertension
     Dosage: VIA NEBULISER
     Route: 055
  8. ILOPROST [Suspect]
     Active Substance: ILOPROST
     Indication: Pulmonary hypertension
     Dosage: NEBULISED; NINE TIMES DAILY
     Route: 055
  9. ILOPROST [Suspect]
     Active Substance: ILOPROST
     Indication: Pulmonary hypertension
     Dosage: NEBULIZED; NINE TIMES DAILY
     Route: 055
  10. SILDENAFIL [Suspect]
     Active Substance: SILDENAFIL
     Indication: Pulmonary hypertension
     Dosage: THREE TIMES DAILY
     Route: 065

REACTIONS (12)
  - Bronchospasm [Recovering/Resolving]
  - Treatment noncompliance [Unknown]
  - Drug ineffective [Unknown]
  - Subcutaneous emphysema [Recovering/Resolving]
  - Cardio-respiratory arrest [Recovering/Resolving]
  - Cardiac tamponade [Recovering/Resolving]
  - Acute respiratory failure [Recovering/Resolving]
  - Pneumothorax [Recovering/Resolving]
  - Dyspnoea [Recovering/Resolving]
  - Obstructive airways disorder [Recovering/Resolving]
  - Cough [Recovering/Resolving]
  - Pneumomediastinum [Recovering/Resolving]
